FAERS Safety Report 19909554 (Version 1)
Quarter: 2021Q4

REPORT INFORMATION
  Report Type: Report from Study
  Country: JP (occurrence: JP)
  Receive Date: 20211001
  Receipt Date: 20211001
  Transmission Date: 20220303
  Serious: Yes (Death, Other)
  Sender: FDA-Public Use
  Company Number: JP-OTSUKA-2017_017495

PATIENT
  Sex: Male
  Weight: 56 kg

DRUGS (3)
  1. PONATINIB [Suspect]
     Active Substance: PONATINIB
     Indication: Chronic myeloid leukaemia transformation
     Dosage: 45 MILLIGRAM, QD
     Route: 048
     Dates: start: 20161209
  2. CYTARABINE [Concomitant]
     Active Substance: CYTARABINE
     Indication: Chronic myeloid leukaemia
     Dosage: UNK
     Route: 065
     Dates: start: 20161117, end: 20161121
  3. CYTARABINE [Concomitant]
     Active Substance: CYTARABINE
     Dosage: UNK
     Route: 065
     Dates: start: 20161213, end: 20161219

REACTIONS (2)
  - Chronic myeloid leukaemia transformation [Fatal]
  - Therapeutic product effect incomplete [Unknown]
